FAERS Safety Report 5553092-0 (Version None)
Quarter: 2007Q4

REPORT INFORMATION
  Report Type: 
  Country: None (occurrence: None)
  Receive Date: 20071206
  Receipt Date: 20071127
  Transmission Date: 20080405
  Serious: Yes (Other)
  Sender: FDA-Public Use
  Company Number: 2007336283

PATIENT
  Age: 77 Year
  Sex: Female
  Weight: 60.782 kg

DRUGS (5)
  1. VISINE EYE DROPS [Suspect]
     Indication: DRY EYE
     Dosage: ONE DROP IN EACH EYE ONCE, OPHTHALMIC
     Route: 047
     Dates: start: 20071122, end: 20071122
  2. DRUG UNSPECIFIED, (DRUG, UNSPECIFIED) [Concomitant]
  3. VERAPAMIL [Concomitant]
  4. MECLICINE (MECLOZINE) [Concomitant]
  5. PLAVIX [Concomitant]

REACTIONS (4)
  - APPLICATION SITE BURN [None]
  - EYE IRRITATION [None]
  - OCULAR HYPERAEMIA [None]
  - VISUAL DISTURBANCE [None]
